FAERS Safety Report 8927662 (Version 1)
Quarter: 2012Q4

REPORT INFORMATION
  Report Type: 
  Country: US (occurrence: US)
  Receive Date: 20121127
  Receipt Date: 20121127
  Transmission Date: 20130627
  Serious: Yes (Death, Hospitalization)
  Sender: FDA-Public Use
  Company Number: PHEH2012US017408

PATIENT
  Age: 84 Year
  Sex: Male

DRUGS (1)
  1. EXJADE [Suspect]
     Indication: IRON METABOLISM DISORDER
     Dosage: 2000 mg, daily
     Route: 048
     Dates: start: 20120706

REACTIONS (2)
  - Death [Fatal]
  - Oedema peripheral [Unknown]
